FAERS Safety Report 20594822 (Version 3)
Quarter: 2022Q1

REPORT INFORMATION
  Report Type: Spontaneous
  Country: FR (occurrence: FR)
  Receive Date: 20220315
  Receipt Date: 20220324
  Transmission Date: 20220423
  Serious: Yes (Death)
  Sender: FDA-Public Use
  Company Number: FR-PFIZER INC-202200386641

PATIENT
  Age: 99 Year
  Sex: Female
  Weight: 73 kg

DRUGS (2)
  1. PAXLOVID [Suspect]
     Active Substance: NIRMATRELVIR\RITONAVIR
     Indication: COVID-19
     Dosage: 1 DF
     Route: 065
     Dates: start: 20220212
  2. PAXLOVID [Suspect]
     Active Substance: NIRMATRELVIR\RITONAVIR
     Indication: COVID-19
     Dosage: 1 DF
     Route: 065
     Dates: start: 20220212

REACTIONS (1)
  - Inappropriate schedule of product administration [Fatal]

NARRATIVE: CASE EVENT DATE: 20220101
